FAERS Safety Report 5122494-9 (Version None)
Quarter: 2006Q4

REPORT INFORMATION
  Report Type: 
  Country: None (occurrence: None)
  Receive Date: 20061004
  Receipt Date: 20060920
  Transmission Date: 20070319
  Serious: Yes (Death)
  Sender: FDA-Public Use
  Company Number: 212766

PATIENT
  Age: 37 Year
  Sex: Female
  Weight: 51 kg

DRUGS (8)
  1. RITUXAN [Suspect]
     Indication: SYSTEMIC LUPUS ERYTHEMATOSUS
     Dosage: 550 MG, INTRAVENOUS
     Route: 042
     Dates: start: 20050211
  2. CYCLOPHOSPHAMIDE [Concomitant]
  3. PREDNISONE TAB [Concomitant]
  4. FLUOXETINE [Concomitant]
  5. FERROUS SULFATE TAB [Concomitant]
  6. HYDRALAZINE HCL [Concomitant]
  7. METOPROLOL TARTRATE [Concomitant]
  8. PANTOPRAZOLE SODIUM [Concomitant]

REACTIONS (2)
  - MYOCARDIAL INFARCTION [None]
  - SEPSIS [None]
